FAERS Safety Report 16785215 (Version 2)
Quarter: 2019Q3

REPORT INFORMATION
  Report Type: Spontaneous
  Country: US (occurrence: US)
  Receive Date: 20190909
  Receipt Date: 20190910
  Transmission Date: 20191005
  Serious: Yes (Other)
  Sender: FDA-Public Use
  Company Number: US-JNJFOC-20190833425

PATIENT
  Age: 38 Year
  Sex: Female
  Weight: 145.28 kg

DRUGS (2)
  1. NEUTROGENA HEALTHY SKIN FIRMING SUNSCREEN BROAD SPECTRUM SPF15 [Suspect]
     Active Substance: AVOBENZONE\HOMOSALATE\OCTISALATE\OCTOCRYLENE\OXYBENZONE
     Indication: DRY SKIN PROPHYLAXIS
     Dosage: 4-5 PUMPS ONCE
     Route: 061
     Dates: start: 20190824
  2. NEUTROGENA DEEP MOISTURE NIGHT CREAM [COSMETICS] [Suspect]
     Active Substance: COSMETICS
     Indication: DRY SKIN PROPHYLAXIS
     Route: 061

REACTIONS (2)
  - Hypersensitivity [Not Recovered/Not Resolved]
  - Chemical burn [Not Recovered/Not Resolved]

NARRATIVE: CASE EVENT DATE: 20190824
